FAERS Safety Report 15696296 (Version 2)
Quarter: 2019Q2

REPORT INFORMATION
  Report Type: Spontaneous
  Country: CA (occurrence: CA)
  Receive Date: 20181206
  Receipt Date: 20190409
  Transmission Date: 20190711
  Serious: Yes (Hospitalization)
  Sender: FDA-Public Use
  Company Number: CA-CELGENEUS-CAN-20180601665

PATIENT
  Age: 15 Year
  Sex: Male

DRUGS (64)
  1. CETIRIZINE HYDROCHLORIDE. [Concomitant]
     Active Substance: CETIRIZINE HYDROCHLORIDE
     Indication: PRURITUS
     Dosage: 20 MILLIGRAM
     Route: 048
     Dates: start: 20170215, end: 20180222
  2. CETIRIZINE HYDROCHLORIDE. [Concomitant]
     Active Substance: CETIRIZINE HYDROCHLORIDE
     Indication: ALLERGY PROPHYLAXIS
     Dosage: 10 MILLIGRAM
     Route: 048
     Dates: start: 20180325, end: 20180325
  3. CETIRIZINE HYDROCHLORIDE. [Concomitant]
     Active Substance: CETIRIZINE HYDROCHLORIDE
     Dosage: 5 MILLIGRAM
     Route: 048
     Dates: start: 20180326
  4. MACROGOL 3350 [Concomitant]
     Active Substance: POLYETHYLENE GLYCOL 3350
     Indication: CONSTIPATION
     Dosage: 17 GRAM
     Route: 048
     Dates: start: 20110815
  5. PARACETAMOL [Concomitant]
     Active Substance: ACETAMINOPHEN
     Indication: INFLUENZA LIKE ILLNESS
     Dosage: 650 MILLIGRAM
     Route: 048
     Dates: start: 20180105, end: 20180105
  6. DIPHENHYDRAMINE HYDROCHLORIDE. [Concomitant]
     Active Substance: DIPHENHYDRAMINE HYDROCHLORIDE
     Indication: HYPERSENSITIVITY
     Dosage: 50 MILLIGRAM
     Route: 041
     Dates: start: 20180105
  7. DOCUSATE SODIUM. [Concomitant]
     Active Substance: DOCUSATE SODIUM
     Indication: CONSTIPATION PROPHYLAXIS
     Dosage: 200 MILLIGRAM
     Route: 048
     Dates: start: 20180312
  8. VANCOMYCIN HYDROCHLORIDE. [Concomitant]
     Active Substance: VANCOMYCIN HYDROCHLORIDE
     Indication: SEPSIS
     Dosage: 1 GRAM
     Route: 041
     Dates: start: 20180324, end: 20180324
  9. DEXTROSE. [Concomitant]
     Active Substance: DEXTROSE
     Route: 041
     Dates: start: 20180104, end: 20180106
  10. SODIUM CHLORIDE. [Concomitant]
     Active Substance: SODIUM CHLORIDE
     Route: 041
     Dates: start: 20180104, end: 20180106
  11. VENETOCLAX. [Suspect]
     Active Substance: VENETOCLAX
     Dosage: 400 MILLIGRAM
     Route: 050
     Dates: start: 20171130, end: 20171130
  12. MELATONIN [Concomitant]
     Active Substance: MELATONIN
     Indication: INSOMNIA
     Dosage: 6 MILLIGRAM
     Route: 048
     Dates: start: 20170615
  13. GRANISETRON [Concomitant]
     Active Substance: GRANISETRON
     Indication: PROPHYLAXIS OF NAUSEA AND VOMITING
     Dosage: 2 MILLIGRAM
     Route: 048
     Dates: start: 20170214
  14. RANITIDINE HYDROCHLORIDE. [Concomitant]
     Active Substance: RANITIDINE HYDROCHLORIDE
     Indication: GASTROOESOPHAGEAL REFLUX PROPHYLAXIS
     Dosage: 150 MILLIGRAM
     Route: 041
     Dates: start: 20180107
  15. VENETOCLAX. [Suspect]
     Active Substance: VENETOCLAX
     Dosage: 500 MILLIGRAM
     Route: 050
     Dates: start: 20180505, end: 20180510
  16. NYSTATIN. [Concomitant]
     Active Substance: NYSTATIN
     Indication: STOMATITIS
     Dosage: 1600000 IU (INTERNATIONAL UNIT)
     Route: 048
     Dates: start: 20170715
  17. ALLOPURINOL. [Concomitant]
     Active Substance: ALLOPURINOL
     Indication: PROPHYLAXIS
     Dosage: 500 MILLIGRAM
     Route: 048
     Dates: start: 20171127, end: 20171202
  18. ZINC GLUCONATE [Concomitant]
     Active Substance: ZINC GLUCONATE
     Indication: PROMOTION OF WOUND HEALING
     Dosage: 10 MILLIGRAM
     Route: 048
     Dates: start: 20180413
  19. VENETOCLAX. [Suspect]
     Active Substance: VENETOCLAX
     Dosage: 600 MILLIGRAM
     Route: 050
     Dates: start: 20180511, end: 20180615
  20. CYTARABINE. [Suspect]
     Active Substance: CYTARABINE
     Indication: REFRACTORY CANCER
     Dosage: 20 MILLIGRAM/SQ. METER
     Route: 041
     Dates: start: 20180430, end: 20180604
  21. VITAMIN D2 [Concomitant]
     Active Substance: ERGOCALCIFEROL
     Indication: SUPPLEMENTATION THERAPY
     Dosage: 7000 IU (INTERNATIONAL UNIT)
     Route: 048
     Dates: start: 20140115
  22. LORAZEPAM. [Concomitant]
     Active Substance: LORAZEPAM
     Indication: AGITATION
     Dosage: 4 MILLIGRAM
     Route: 060
     Dates: start: 20180312, end: 20180315
  23. PREGABALIN. [Concomitant]
     Active Substance: PREGABALIN
     Indication: MYALGIA
     Dosage: 50 MILLIGRAM
     Route: 048
     Dates: start: 20180326, end: 20180326
  24. PREGABALIN. [Concomitant]
     Active Substance: PREGABALIN
     Indication: PAIN
     Dosage: 100 MILLIGRAM
     Route: 048
     Dates: start: 20180327
  25. CIPROFLOXACIN HYDROCHLORIDE. [Concomitant]
     Active Substance: CIPROFLOXACIN HYDROCHLORIDE
     Indication: INFECTION PROPHYLAXIS
     Dosage: 1000 MILLIGRAM
     Route: 048
     Dates: start: 20180503, end: 20180521
  26. SODIUM CHLORIDE. [Concomitant]
     Active Substance: SODIUM CHLORIDE
     Indication: PROPHYLAXIS
     Route: 041
     Dates: start: 20171128, end: 20171202
  27. CETIRIZINE HYDROCHLORIDE. [Concomitant]
     Active Substance: CETIRIZINE HYDROCHLORIDE
     Dosage: 10 MILLIGRAM
     Route: 048
     Dates: start: 20180311, end: 20180315
  28. ALLOPURINOL. [Concomitant]
     Active Substance: ALLOPURINOL
     Indication: PROPHYLAXIS
     Dosage: 750 MILLIGRAM
     Route: 048
     Dates: start: 20180312, end: 20180314
  29. PARACETAMOL [Concomitant]
     Active Substance: ACETAMINOPHEN
     Indication: PYREXIA
     Dosage: 3900 MILLIGRAM
     Route: 048
     Dates: start: 20180105
  30. CALCIUM CARBONATE. [Concomitant]
     Active Substance: CALCIUM CARBONATE
     Indication: GASTROOESOPHAGEAL REFLUX DISEASE
     Dosage: 2 DROPS
     Route: 048
     Dates: start: 20171215
  31. VIDAZA [Suspect]
     Active Substance: AZACITIDINE
     Indication: REFRACTORY CANCER
     Dosage: 75 MILLIGRAM/SQ. METER
     Route: 041
     Dates: start: 20180104, end: 20180108
  32. VENETOCLAX. [Suspect]
     Active Substance: VENETOCLAX
     Dosage: 400 MILLIGRAM
     Route: 050
     Dates: start: 20180104, end: 20180424
  33. MACROGOL 3350 [Concomitant]
     Active Substance: POLYETHYLENE GLYCOL 3350
     Dosage: .279 MICROGRAM/KILOGRAM/HR
     Route: 048
     Dates: start: 20180421
  34. ALLOPURINOL. [Concomitant]
     Active Substance: ALLOPURINOL
     Indication: BLOOD URIC ACID
     Dosage: 500 MILLIGRAM
     Route: 048
     Dates: start: 20180104, end: 20180108
  35. LORAZEPAM. [Concomitant]
     Active Substance: LORAZEPAM
     Indication: ANXIETY
     Dosage: 6 MILLIGRAM
     Route: 048
     Dates: start: 20180112
  36. LORAZEPAM. [Concomitant]
     Active Substance: LORAZEPAM
     Dosage: 1.5 MILLIGRAM
     Route: 060
     Dates: start: 20180324
  37. PARACETAMOL [Concomitant]
     Active Substance: ACETAMINOPHEN
     Indication: PAIN
  38. DIPHENHYDRAMINE HYDROCHLORIDE. [Concomitant]
     Active Substance: DIPHENHYDRAMINE HYDROCHLORIDE
     Indication: PREMEDICATION
     Dosage: 50 MILLIGRAM
     Route: 041
     Dates: start: 20171201
  39. RANITIDINE HYDROCHLORIDE. [Concomitant]
     Active Substance: RANITIDINE HYDROCHLORIDE
     Dosage: 300 MILLIGRAM
     Route: 048
     Dates: start: 20180315
  40. CASPOFUNGIN ACETATE. [Concomitant]
     Active Substance: CASPOFUNGIN ACETATE
     Indication: ANTIFUNGAL PROPHYLAXIS
     Dosage: 70 MILLIGRAM
     Route: 041
     Dates: start: 20180112, end: 20180215
  41. VANCOMYCIN HYDROCHLORIDE. [Concomitant]
     Active Substance: VANCOMYCIN HYDROCHLORIDE
     Indication: CLOSTRIDIUM DIFFICILE INFECTION
     Dosage: 1000 MILLIGRAM
     Route: 048
     Dates: start: 20180325, end: 20180406
  42. VANCOMYCIN HYDROCHLORIDE. [Concomitant]
     Active Substance: VANCOMYCIN HYDROCHLORIDE
     Indication: FEBRILE NEUTROPENIA
     Dosage: 3200 MILLIGRAM
     Route: 041
     Dates: start: 20180323, end: 20180324
  43. SELENIUM [Concomitant]
     Active Substance: SELENIUM
     Indication: PROMOTION OF WOUND HEALING
     Dosage: 50 MICROGRAM
     Route: 048
     Dates: start: 20180405
  44. VENETOCLAX. [Suspect]
     Active Substance: VENETOCLAX
     Indication: REFRACTORY CANCER
     Dosage: 200 MILLIGRAM
     Route: 050
     Dates: start: 20171129, end: 20171129
  45. VENETOCLAX. [Suspect]
     Active Substance: VENETOCLAX
     Dosage: 800 MILLIGRAM
     Route: 050
     Dates: start: 20180628
  46. SERTRALINE HYDROCHLORIDE. [Concomitant]
     Active Substance: SERTRALINE HYDROCHLORIDE
     Dosage: 75 MILLIGRAM
     Route: 048
     Dates: start: 20180115
  47. PENTAMIDINE [Concomitant]
     Active Substance: PENTAMIDINE
     Indication: INFECTION PROPHYLAXIS
     Dosage: 432000 MILLIGRAM
     Route: 041
     Dates: start: 20171115
  48. GRANISETRON [Concomitant]
     Active Substance: GRANISETRON
     Indication: PROPHYLAXIS OF NAUSEA AND VOMITING
     Dosage: 1 MILLIGRAM
     Route: 048
     Dates: start: 20180106
  49. MACROGOL 3350 [Concomitant]
     Active Substance: POLYETHYLENE GLYCOL 3350
     Indication: CONSTIPATION PROPHYLAXIS
     Dosage: 6.696 MICROGRAM/KILOGRAM
     Route: 048
     Dates: start: 20180326, end: 20180420
  50. PARACETAMOL [Concomitant]
     Active Substance: ACETAMINOPHEN
     Indication: TRANSFUSION
     Dosage: 3900 MILLIGRAM
     Route: 048
     Dates: start: 20171129
  51. HEPARIN SODIUM. [Concomitant]
     Active Substance: HEPARIN SODIUM
     Dosage: 200 IU (INTERNATIONAL UNIT)
     Route: 041
     Dates: start: 20180116
  52. CASPOFUNGIN ACETATE. [Concomitant]
     Active Substance: CASPOFUNGIN ACETATE
     Dosage: 50 MILLIGRAM
     Route: 041
     Dates: start: 20180216
  53. VANCOMYCIN HYDROCHLORIDE. [Concomitant]
     Active Substance: VANCOMYCIN HYDROCHLORIDE
     Dosage: 3000 MILLIGRAM
     Route: 041
     Dates: start: 20180107
  54. VIDAZA [Suspect]
     Active Substance: AZACITIDINE
     Dosage: 75 MILLIGRAM/SQ. METER
     Route: 041
     Dates: start: 20180222, end: 20180226
  55. VENETOCLAX. [Suspect]
     Active Substance: VENETOCLAX
     Dosage: 800 MILLIGRAM
     Route: 050
     Dates: start: 20171201, end: 20180103
  56. SERTRALINE HYDROCHLORIDE. [Concomitant]
     Active Substance: SERTRALINE HYDROCHLORIDE
     Indication: DEPRESSION
     Dosage: 125 MILLIGRAM
     Route: 048
     Dates: start: 20180426
  57. NYSTATIN. [Concomitant]
     Active Substance: NYSTATIN
     Dosage: 160000 IU (INTERNATIONAL UNIT)
     Route: 048
     Dates: start: 20170715
  58. PARACETAMOL [Concomitant]
     Active Substance: ACETAMINOPHEN
     Indication: HEADACHE
  59. BENZOCAINE. [Concomitant]
     Active Substance: BENZOCAINE
     Indication: OROPHARYNGEAL PAIN
     Dosage: 1 LOZENGE
     Route: 048
     Dates: start: 20171130
  60. HEPARIN SODIUM. [Concomitant]
     Active Substance: HEPARIN SODIUM
     Indication: CATHETER MANAGEMENT
     Dosage: 20 IU (INTERNATIONAL UNIT)
     Route: 041
     Dates: start: 20171201, end: 20171206
  61. DIPHENHYDRAMINE HYDROCHLORIDE. [Concomitant]
     Active Substance: DIPHENHYDRAMINE HYDROCHLORIDE
     Dosage: 200 MILLIGRAM
     Route: 048
     Dates: start: 20180107
  62. NABILONE [Concomitant]
     Active Substance: NABILONE
     Indication: PAIN
     Dosage: 2 MILLIGRAM
     Route: 048
     Dates: start: 20180323, end: 20180420
  63. NABILONE [Concomitant]
     Active Substance: NABILONE
     Dosage: 1 MILLIGRAM
     Route: 048
     Dates: start: 20180421
  64. DEXTROSE. [Concomitant]
     Active Substance: DEXTROSE
     Indication: PROPHYLAXIS
     Route: 041
     Dates: start: 20171128, end: 20171202

REACTIONS (3)
  - Sepsis [Recovered/Resolved]
  - Febrile neutropenia [Recovered/Resolved]
  - Necrotising fasciitis [Recovered/Resolved]

NARRATIVE: CASE EVENT DATE: 20180523
